FAERS Safety Report 11643204 (Version 5)
Quarter: 2016Q1

REPORT INFORMATION
  Report Type: Spontaneous
  Country: US (occurrence: US)
  Receive Date: 20151020
  Receipt Date: 20160225
  Transmission Date: 20160525
  Serious: No
  Sender: FDA-Public Use
  Company Number: US-PFIZER INC-2015351754

PATIENT
  Age: 10 Year
  Sex: Female

DRUGS (4)
  1. IBUPROFEN. [Concomitant]
     Active Substance: IBUPROFEN
     Dosage: 2 TO 3 TEASPOONS OF 100MG/5ML LIQUID EVERY 6 TO 8 HOURS AS NEEDED
  2. CETIRIZINE [Concomitant]
     Active Substance: CETIRIZINE HYDROCHLORIDE
     Indication: HYPERSENSITIVITY
     Dosage: 10 MG, AS NEEDED (DAILY)
     Dates: start: 2001
  3. SERTRALINE HCL [Suspect]
     Active Substance: SERTRALINE HYDROCHLORIDE
     Indication: ANXIETY DISORDER
     Dosage: 25 MG, 1X/DAY (1.25 ML, 1X/DAY, MIXED WITH SPRITE)
     Route: 048
     Dates: start: 20150218, end: 2015
  4. SERTRALINE HCL [Suspect]
     Active Substance: SERTRALINE HYDROCHLORIDE
     Indication: PANIC ATTACK
     Dosage: 25 MG, 1X/DAY(1.25 ML, 1X/DAY, MIXED WITH SPRITE)
     Route: 048
     Dates: start: 2015, end: 2015

REACTIONS (3)
  - Product use issue [Unknown]
  - Hypoaesthesia oral [Recovered/Resolved]
  - Burning sensation [Recovered/Resolved]

NARRATIVE: CASE EVENT DATE: 20150218
